FAERS Safety Report 13973849 (Version 1)
Quarter: 2017Q3

REPORT INFORMATION
  Report Type: Spontaneous
  Country: GB (occurrence: GB)
  Receive Date: 20170915
  Receipt Date: 20170915
  Transmission Date: 20171128
  Serious: Yes (Life-Threatening, Hospitalization)
  Sender: FDA-Public Use
  Company Number: GB-AMGEN-GBRSP2017139060

PATIENT
  Age: 70 Year
  Sex: Female

DRUGS (6)
  1. ETANERCEPT [Suspect]
     Active Substance: ETANERCEPT
     Indication: RHEUMATOID ARTHRITIS
     Dosage: 1 DF, WEEKLY
     Route: 042
  2. COCODAMOL [Concomitant]
     Active Substance: ACETAMINOPHEN\CODEINE PHOSPHATE
     Dosage: UNK
  3. PREDNISOLONE. [Concomitant]
     Active Substance: PREDNISOLONE
     Dosage: UNK
  4. SERTRALINE [Concomitant]
     Active Substance: SERTRALINE HYDROCHLORIDE
     Dosage: UNK
  5. FOSTAIR [Concomitant]
     Active Substance: BECLOMETHASONE\FORMOTEROL
     Dosage: UNK
  6. SIMVASTATIN. [Concomitant]
     Active Substance: SIMVASTATIN
     Dosage: UNK

REACTIONS (2)
  - Metastases to central nervous system [Not Recovered/Not Resolved]
  - Lung neoplasm malignant [Not Recovered/Not Resolved]

NARRATIVE: CASE EVENT DATE: 20170819
